FAERS Safety Report 6233111-9 (Version None)
Quarter: 2009Q2

REPORT INFORMATION
  Report Type: 
  Country: None (occurrence: None)
  Receive Date: 20090617
  Receipt Date: 20090603
  Transmission Date: 20091009
  Serious: Yes (Death, Hospitalization, Other)
  Sender: FDA-Public Use
  Company Number: GB-BAXTER-2009BH009661

PATIENT
  Age: 51 Year
  Sex: Female

DRUGS (4)
  1. CYCLOPHOSPHAMIDE [Suspect]
     Indication: B-CELL LYMPHOMA STAGE III
     Route: 065
  2. ADRIAMYCIN RDF [Suspect]
     Indication: B-CELL LYMPHOMA STAGE III
     Route: 065
  3. PREDNISOLONE [Suspect]
     Indication: B-CELL LYMPHOMA STAGE III
     Route: 065
  4. VINCRISTINE SULFATE [Suspect]
     Indication: B-CELL LYMPHOMA STAGE III
     Route: 065

REACTIONS (5)
  - CANDIDIASIS [None]
  - JAUNDICE [None]
  - PNEUMONIA [None]
  - SEPTIC SHOCK [None]
  - STAPHYLOCOCCAL INFECTION [None]
